FAERS Safety Report 7201425-1 (Version None)
Quarter: 2010Q4

REPORT INFORMATION
  Report Type: 
  Country: None (occurrence: None)
  Receive Date: 20101229
  Receipt Date: 20101223
  Transmission Date: 20110411
  Serious: Yes (Hospitalization, Other)
  Sender: FDA-Public Use
  Company Number: US-AMGEN-USASP2010004781

PATIENT

DRUGS (8)
  1. NPLATE [Suspect]
     Indication: IDIOPATHIC THROMBOCYTOPENIC PURPURA
     Dosage: 600 A?G, QWK
     Route: 058
     Dates: start: 20100401
  2. NPLATE [Suspect]
     Dates: start: 20100401
  3. ALFUZOSIN [Concomitant]
     Dosage: 10 MG, UNK
  4. CELECOXIB [Concomitant]
     Dosage: 200 MG, UNK
  5. VICODIN [Concomitant]
  6. PROMETHAZINE [Concomitant]
     Dosage: 25 MG, UNK
  7. ALLOPURINOL [Concomitant]
     Dosage: 300 MG, UNK
     Dates: start: 20101008
  8. CORTICOSTEROIDS [Suspect]
     Indication: IDIOPATHIC THROMBOCYTOPENIC PURPURA

REACTIONS (3)
  - HOSPITALISATION [None]
  - PLATELET COUNT DECREASED [None]
  - SEPSIS [None]
